FAERS Safety Report 9522839 (Version 2)
Quarter: 2013Q3

REPORT INFORMATION
  Report Type: Spontaneous
  Country: US (occurrence: US)
  Receive Date: 20130913
  Receipt Date: 20130913
  Transmission Date: 20140515
  Serious: Yes (Disabling)
  Sender: FDA-Public Use
  Company Number: US-009507513-2011SP058223

PATIENT
  Sex: Female
  Weight: 52.62 kg

DRUGS (4)
  1. NUVARING [Suspect]
     Indication: CONTRACEPTION
     Dates: start: 20051201, end: 200605
  2. NUVARING [Suspect]
     Dates: start: 20070608, end: 200709
  3. NUVARING [Suspect]
     Dates: start: 20080520, end: 200903
  4. NUVARING [Suspect]
     Dates: start: 20090623, end: 201001

REACTIONS (10)
  - Deep vein thrombosis [Not Recovered/Not Resolved]
  - Hypercoagulation [Unknown]
  - Venous insufficiency [Unknown]
  - Pyelonephritis [Unknown]
  - Tooth abscess [Unknown]
  - Urinary tract infection [Unknown]
  - Depression [Unknown]
  - Bacterial vaginosis [Unknown]
  - Pain [Unknown]
  - Joint effusion [Unknown]
